FAERS Safety Report 5618928-3 (Version None)
Quarter: 2008Q1

REPORT INFORMATION
  Report Type: 
  Country: None (occurrence: None)
  Receive Date: 20080207
  Receipt Date: 20080204
  Transmission Date: 20080703
  Serious: Yes (Death)
  Sender: FDA-Public Use
  Company Number: GB-SANOFI-SYNTHELABO-F01200800192

PATIENT
  Sex: Male
  Weight: 48.9 kg

DRUGS (9)
  1. DOMPERIDONE [Concomitant]
     Dosage: 20 MG
     Route: 048
     Dates: start: 20070725, end: 20070701
  2. DEXAMETHASONE TAB [Concomitant]
     Route: 048
     Dates: start: 20070725, end: 20070908
  3. GRANISETRON [Concomitant]
     Dosage: 8 MG
     Route: 041
     Dates: start: 20070725, end: 20070906
  4. PARACETAMOL [Concomitant]
     Dosage: 1 G
     Route: 048
     Dates: start: 20070725, end: 20070906
  5. CHLORPHENIRAMINE MALEATE [Concomitant]
     Dosage: 10 MG
     Route: 041
     Dates: start: 20070725, end: 20070906
  6. RANITIDINE [Concomitant]
     Dosage: 50 MG
     Route: 041
     Dates: start: 20070725, end: 20070906
  7. CETUXIMAB [Suspect]
     Route: 041
     Dates: start: 20070907, end: 20070907
  8. OXALIPLATIN [Suspect]
     Indication: COLORECTAL CANCER METASTATIC
     Route: 041
     Dates: start: 20070907, end: 20070907
  9. CAPECITABINE [Suspect]
     Dosage: 1000 MG/M2 BID DAYS 1-14
     Route: 048
     Dates: start: 20070907

REACTIONS (1)
  - DEATH [None]
